FAERS Safety Report 4847260-0 (Version None)
Quarter: 2005Q4

REPORT INFORMATION
  Report Type: 
  Country: None (occurrence: None)
  Receive Date: 20051207
  Receipt Date: 20051129
  Transmission Date: 20060501
  Serious: Yes (Hospitalization)
  Sender: FDA-Public Use
  Company Number: FR-GLAXOSMITHKLINE-B0402583A

PATIENT
  Age: 75 Year
  Sex: Male

DRUGS (3)
  1. AUGMENTIN [Suspect]
     Indication: PYREXIA
     Dosage: 1TAB SINGLE DOSE
     Route: 048
     Dates: start: 20051101, end: 20051101
  2. CLAFORAN [Suspect]
     Indication: PYREXIA
     Route: 048
     Dates: start: 20051101, end: 20051101
  3. QUINOLONE [Suspect]
     Indication: PYREXIA
     Route: 048
     Dates: start: 20051101, end: 20051101

REACTIONS (3)
  - CHOLECYSTITIS [None]
  - EOSINOPHILIA [None]
  - ERYTHEMA MULTIFORME [None]
